FAERS Safety Report 20164813 (Version 1)
Quarter: 2021Q4

REPORT INFORMATION
  Report Type: Spontaneous
  Country: US (occurrence: None)
  Receive Date: 20211208
  Receipt Date: 20211208
  Transmission Date: 20220303
  Serious: No
  Sender: FDA-Public Use
  Company Number: None

PATIENT
  Age: 29 Year
  Sex: Female

DRUGS (1)
  1. COSENTYX [Suspect]
     Active Substance: SECUKINUMAB
     Indication: Psoriasis
     Route: 058
     Dates: start: 202107

REACTIONS (5)
  - Pregnancy [None]
  - Exposure during pregnancy [None]
  - Abortion spontaneous [None]
  - Psoriasis [None]
  - Therapy interrupted [None]

NARRATIVE: CASE EVENT DATE: 20210908
